FAERS Safety Report 7309515-X (Version None)
Quarter: 2011Q1

REPORT INFORMATION
  Report Type: 
  Country: None (occurrence: None)
  Receive Date: 20110223
  Receipt Date: 20110217
  Transmission Date: 20110831
  Serious: Yes (Hospitalization, Other)
  Sender: FDA-Public Use
  Company Number: US-RB-015170-10

PATIENT
  Age: 56 Year
  Sex: Female

DRUGS (2)
  1. SUBOXONE [Suspect]
     Route: 060
     Dates: start: 20060101, end: 20100601
  2. SUBOXONE [Suspect]
     Indication: DRUG DEPENDENCE
     Route: 060
     Dates: start: 20100601

REACTIONS (12)
  - SINUSITIS [None]
  - ACNE [None]
  - ASTHENIA [None]
  - DRUG WITHDRAWAL SYNDROME [None]
  - DRUG DEPENDENCE [None]
  - EYE SWELLING [None]
  - SKIN WRINKLING [None]
  - CALCINOSIS [None]
  - PREMATURE AGEING [None]
  - NODULE [None]
  - PARANOIA [None]
  - SCAR [None]
